FAERS Safety Report 9483878 (Version 2)
Quarter: 2013Q3

REPORT INFORMATION
  Report Type: Spontaneous
  Country: US (occurrence: US)
  Receive Date: 20130828
  Receipt Date: 20130828
  Transmission Date: 20140515
  Serious: Yes (Death, Hospitalization)
  Sender: FDA-Public Use
  Company Number: US-AMGEN-KDL343785

PATIENT
  Age: 86 Year
  Sex: Male
  Weight: 86.7 kg

DRUGS (1)
  1. PROCRIT [Suspect]
     Indication: RENAL FAILURE CHRONIC
     Dosage: UNK UNK, UNK
     Route: 065

REACTIONS (5)
  - Death [Fatal]
  - Cardiac failure congestive [Unknown]
  - Renal failure acute [Unknown]
  - Hypoglycaemia [Recovered/Resolved]
  - Hyperkalaemia [Recovered/Resolved]
